FAERS Safety Report 8418497-9 (Version None)
Quarter: 2012Q2

REPORT INFORMATION
  Report Type: 
  Country: None (occurrence: None)
  Receive Date: 20120607
  Receipt Date: 20120530
  Transmission Date: 20120825
  Serious: Yes (Hospitalization)
  Sender: FDA-Public Use
  Company Number: FR-ASTELLAS-2012EU003943

PATIENT
  Sex: Male

DRUGS (11)
  1. PROGRAF [Suspect]
     Dosage: 3 G, BID
     Route: 048
     Dates: start: 20120101
  2. PREDNISOLONE [Concomitant]
     Dosage: UNK
     Route: 065
  3. NEXIUM [Concomitant]
     Dosage: UNK
     Route: 065
  4. ASPIRIN [Concomitant]
     Dosage: UNK
     Route: 065
  5. BISOPROLOL FUMARATE [Concomitant]
     Dosage: UNK
     Route: 065
  6. CELLCEPT [Concomitant]
     Dosage: UNK
     Route: 065
  7. LEVOTHYROXINE SODIUM [Concomitant]
     Dosage: UNK
     Route: 065
  8. BACTRIM [Concomitant]
     Dosage: UNK
     Route: 065
  9. ALLOPURINOL [Concomitant]
     Dosage: UNK
     Route: 065
  10. BACTRIM [Concomitant]
  11. ATORVASTATIN [Concomitant]
     Dosage: UNK
     Route: 065

REACTIONS (4)
  - DYSPNOEA [None]
  - COUGH [None]
  - OBSTRUCTIVE AIRWAYS DISORDER [None]
  - RESPIRATORY DISORDER [None]
